FAERS Safety Report 7553835-0 (Version None)
Quarter: 2011Q2

REPORT INFORMATION
  Report Type: 
  Country: None (occurrence: None)
  Receive Date: 20110617
  Receipt Date: 20110610
  Transmission Date: 20111010
  Serious: Yes (Death, Life-Threatening)
  Sender: FDA-Public Use
  Company Number: JP-JNJFOC-20110302371

PATIENT
  Sex: Female

DRUGS (6)
  1. DOXORUBICIN HCL [Suspect]
     Route: 042
     Dates: start: 20091113, end: 20091113
  2. HEPARIN AND PREPARATIONS [Concomitant]
     Indication: PULMONARY EMBOLISM
     Route: 041
     Dates: start: 20100206, end: 20100217
  3. DOXORUBICIN HCL [Suspect]
     Indication: MALIGNANT PERITONEAL NEOPLASM
     Route: 042
     Dates: start: 20090826, end: 20090826
  4. DOXORUBICIN HCL [Suspect]
     Route: 042
     Dates: start: 20100113, end: 20100113
  5. DOXORUBICIN HCL [Suspect]
     Route: 042
     Dates: start: 20091216, end: 20091216
  6. DOXORUBICIN HCL [Suspect]
     Route: 042
     Dates: start: 20091005, end: 20091005

REACTIONS (5)
  - PALMAR-PLANTAR ERYTHRODYSAESTHESIA SYNDROME [None]
  - MALIGNANT PERITONEAL NEOPLASM [None]
  - RESPIRATORY FAILURE [None]
  - DISEASE PROGRESSION [None]
  - INTERSTITIAL LUNG DISEASE [None]
